FAERS Safety Report 4728859-9 (Version None)
Quarter: 2005Q3

REPORT INFORMATION
  Report Type: 
  Country: None (occurrence: None)
  Receive Date: 20050729
  Receipt Date: 20050414
  Transmission Date: 20060218
  Serious: No
  Sender: FDA-Public Use
  Company Number: US-GLAXOSMITHKLINE-A0554229A

PATIENT
  Age: 52 Year
  Sex: Female

DRUGS (7)
  1. IMITREX [Suspect]
     Indication: MIGRAINE
     Dosage: 50MG AS REQUIRED
     Route: 048
     Dates: start: 20050323, end: 20050401
  2. SYNTHROID [Concomitant]
  3. ZYRTEC [Concomitant]
  4. XANAX [Concomitant]
  5. ACTONEL [Concomitant]
  6. TOPAMAX [Concomitant]
  7. VITAMINS [Concomitant]

REACTIONS (3)
  - FATIGUE [None]
  - MALAISE [None]
  - PHARYNGOLARYNGEAL PAIN [None]
